FAERS Safety Report 9056151 (Version 1)
Quarter: 2013Q1

REPORT INFORMATION
  Report Type: Spontaneous
  Country: US (occurrence: US)
  Receive Date: 20130205
  Receipt Date: 20130205
  Transmission Date: 20140127
  Serious: Yes (Hospitalization, Other)
  Sender: FDA-Public Use
  Company Number: US-SANOFI-AVENTIS-2013SA007740

PATIENT
  Age: 59 Year
  Sex: Female

DRUGS (5)
  1. MULTAQ [Suspect]
     Indication: ATRIAL FIBRILLATION
     Dates: start: 201201
  2. MORPHINE [Concomitant]
  3. METOPROLOL [Concomitant]
  4. PRAVASTATIN [Concomitant]
  5. OMEPRAZOLE [Concomitant]

REACTIONS (4)
  - Diverticulitis [Recovered/Resolved]
  - Atrial fibrillation [Unknown]
  - Alopecia [Not Recovered/Not Resolved]
  - Acne [Recovered/Resolved]
